FAERS Safety Report 6018029-9 (Version None)
Quarter: 2008Q4

REPORT INFORMATION
  Report Type: 
  Country: None (occurrence: None)
  Receive Date: 20081223
  Receipt Date: 20081219
  Transmission Date: 20090506
  Serious: Yes (Disabling)
  Sender: FDA-Public Use
  Company Number: B0551684A

PATIENT
  Sex: Female

DRUGS (1)
  1. PROPAFENONE HCL [Suspect]
     Dosage: 150MG THREE TIMES PER DAY
     Route: 048
     Dates: start: 20050901

REACTIONS (3)
  - MACULAR DEGENERATION [None]
  - PSORIASIS [None]
  - VISUAL IMPAIRMENT [None]
